FAERS Safety Report 19913541 (Version 1)
Quarter: 2021Q4

REPORT INFORMATION
  Report Type: Spontaneous
  Country: MX (occurrence: MX)
  Receive Date: 20211004
  Receipt Date: 20211004
  Transmission Date: 20220303
  Serious: Yes (Hospitalization, Other)
  Sender: FDA-Public Use
  Company Number: MX-LUNDBECK-DKLU3038935

PATIENT
  Age: 17 Year
  Sex: Male

DRUGS (6)
  1. BRINTELLIX [Suspect]
     Active Substance: VORTIOXETINE HYDROBROMIDE
     Indication: Anxiety
     Dosage: 20 MILLIGRAM, QD
     Route: 048
     Dates: start: 20210913
  2. BRINTELLIX [Suspect]
     Active Substance: VORTIOXETINE HYDROBROMIDE
     Indication: Depression
  3. FLUPENTIXOL DECANOATE [Suspect]
     Active Substance: FLUPENTIXOL DECANOATE
     Indication: Anxiety
     Dosage: UNK UNK, MONTHLY
     Route: 030
     Dates: start: 20210913, end: 20210913
  4. FLUPENTIXOL DECANOATE [Suspect]
     Active Substance: FLUPENTIXOL DECANOATE
     Indication: Depression
  5. Zapex [Concomitant]
     Indication: Anxiety
     Dosage: 15 MILLIGRAM, QD
     Route: 048
     Dates: start: 20210913
  6. Zapex [Concomitant]
     Indication: Depression

REACTIONS (5)
  - Hypoaesthesia oral [Recovering/Resolving]
  - Dyskinesia [Recovering/Resolving]
  - Opisthotonus [Recovering/Resolving]
  - Product administered to patient of inappropriate age [Unknown]
  - Dizziness [Recovering/Resolving]

NARRATIVE: CASE EVENT DATE: 20210914
